FAERS Safety Report 7169720-2 (Version None)
Quarter: 2010Q4

REPORT INFORMATION
  Report Type: 
  Country: None (occurrence: None)
  Receive Date: 20101217
  Receipt Date: 20101207
  Transmission Date: 20110411
  Serious: Yes (Hospitalization)
  Sender: FDA-Public Use
  Company Number: CA-JNJFOC-20101203483

PATIENT
  Sex: Female
  Weight: 86.7 kg

DRUGS (4)
  1. REMICADE [Suspect]
     Indication: PSORIASIS
     Dosage: LAST INFUSION 14-OCT-2010
     Route: 042
  2. REMICADE [Suspect]
     Dosage: LAST INFUSION 14-OCT-2010
     Route: 042
  3. REMICADE [Suspect]
     Indication: PSORIATIC ARTHROPATHY
     Dosage: LAST INFUSION 14-OCT-2010
     Route: 042
  4. REMICADE [Suspect]
     Dosage: LAST INFUSION 14-OCT-2010
     Route: 042

REACTIONS (1)
  - ABDOMINAL STRANGULATED HERNIA [None]
